FAERS Safety Report 10042588 (Version 1)
Quarter: 2014Q1

REPORT INFORMATION
  Report Type: Spontaneous
  Country: US (occurrence: None)
  Receive Date: 20140325
  Receipt Date: 20140325
  Transmission Date: 20141002
  Serious: Yes (Other)
  Sender: FDA-Public Use
  Company Number: 2014-US-003231

PATIENT
  Age: 56 Year
  Sex: Female

DRUGS (18)
  1. XYREM [Suspect]
     Indication: NARCOLEPSY
     Route: 048
     Dates: start: 201302
  2. XYREM [Suspect]
     Indication: NARCOLEPSY
     Route: 048
     Dates: start: 201302
  3. XYREM [Suspect]
     Indication: CATAPLEXY
     Route: 048
     Dates: start: 201302
  4. PRIALT [Suspect]
     Indication: PAIN
     Route: 037
  5. PRIALT [Suspect]
     Indication: NEUROPATHY PERIPHERAL
     Route: 037
  6. PROVIGIL (MODAFINIL) [Concomitant]
  7. PROAIR (FLUTICASONE PROPIONATE) [Concomitant]
  8. FLOVENT (FLUTICASONE PROPIONATE) [Concomitant]
  9. FLUTICASONE (FLUTICASONE PROPIONATE) [Concomitant]
  10. SINGULAIR (MONTELUKAST SODIUM) TABLET [Concomitant]
  11. ALLERGY (CHLORPHENAMINE MALEATE) [Concomitant]
  12. THYROID [Concomitant]
  13. LOPRESSOR (METOPROLOL TARTRATE) [Concomitant]
  14. OXYCODONE (OXYCODONE HYDROCHLORIDE) (OXYCODONE) [Concomitant]
  15. VALIUM (BENZOIC ACID, BENZYL ALCOHOL, DIAZEPAM, ETHANOL, PROPYLENE GLYCOL, SODIUM BENZOATE) [Concomitant]
  16. NEURONTIN (GABAPENTIN) [Concomitant]
  17. PAXIL (PAROXETINE HYDROCHLORIDE) [Concomitant]
  18. DILAUDID (HYDROMORPHONE HYDROCHLORIDE) [Concomitant]

REACTIONS (3)
  - Abasia [None]
  - Joint swelling [None]
  - Bone disorder [None]
